FAERS Safety Report 8994871 (Version 1)
Quarter: 2013Q1

REPORT INFORMATION
  Report Type: Spontaneous
  Country: US (occurrence: US)
  Receive Date: 20130102
  Receipt Date: 20130102
  Transmission Date: 20140127
  Serious: No
  Sender: FDA-Public Use
  Company Number: US-AMGEN-USASP2012078222

PATIENT
  Age: 28 Year
  Sex: Female

DRUGS (2)
  1. ENBREL [Suspect]
     Indication: RHEUMATOID ARTHRITIS
     Dosage: UNK
  2. PREDNISONE [Concomitant]
     Dosage: 10MG TAPER

REACTIONS (5)
  - Rash [Unknown]
  - Abdominal discomfort [Unknown]
  - Chest discomfort [Unknown]
  - Infertility female [Unknown]
  - Anxiety [Unknown]
